FAERS Safety Report 4741101-8 (Version None)
Quarter: 2005Q3

REPORT INFORMATION
  Report Type: 
  Country: None (occurrence: None)
  Receive Date: 20050729
  Receipt Date: 20050309
  Transmission Date: 20060218
  Serious: Yes (Other)
  Sender: FDA-Public Use
  Company Number: 2005S1001081

PATIENT
  Age: 70 Year
  Sex: Male

DRUGS (3)
  1. APOKYN [Suspect]
     Indication: PARKINSON'S DISEASE
     Dosage: 2.4 MG;PRN;SC
     Dates: start: 20041201
  2. PRAMIPEXOLE DIHYDROCHLORIDE [Concomitant]
  3. CARBIDOPA/LEVODOPA/ENTACAPONE [Concomitant]

REACTIONS (1)
  - HYPERTENSION [None]
